FAERS Safety Report 13393025 (Version 1)
Quarter: 2017Q1

REPORT INFORMATION
  Report Type: Spontaneous
  Country: JP (occurrence: JP)
  Receive Date: 20170331
  Receipt Date: 20170331
  Transmission Date: 20170429
  Serious: Yes (Other)
  Sender: FDA-Public Use
  Company Number: JP-PFIZER INC-2017133044

PATIENT
  Age: 49 Year
  Sex: Female

DRUGS (1)
  1. CORTRIL [Suspect]
     Active Substance: HYDROCORTISONE
     Dosage: UNK
     Route: 048
     Dates: start: 201207, end: 201306

REACTIONS (2)
  - Cushing^s syndrome [Unknown]
  - Osteonecrosis [Unknown]
